FAERS Safety Report 14569379 (Version 3)
Quarter: 2018Q1

REPORT INFORMATION
  Report Type: Spontaneous
  Country: DE (occurrence: DE)
  Receive Date: 20180223
  Receipt Date: 20180323
  Transmission Date: 20180509
  Serious: Yes (Hospitalization)
  Sender: FDA-Public Use
  Company Number: DE-BIOGEN-2018BI00529058

PATIENT
  Age: 44 Year
  Sex: Male
  Weight: 82 kg

DRUGS (4)
  1. ZINBRYTA [Suspect]
     Active Substance: DACLIZUMAB
     Indication: RELAPSING-REMITTING MULTIPLE SCLEROSIS
     Route: 058
     Dates: start: 201609, end: 20180128
  2. FAMPYRA [Suspect]
     Active Substance: DALFAMPRIDINE
     Indication: RELAPSING-REMITTING MULTIPLE SCLEROSIS
     Route: 048
     Dates: start: 201608
  3. ZINBRYTA [Suspect]
     Active Substance: DACLIZUMAB
     Route: 030
     Dates: start: 201609, end: 201801
  4. CITALOPRAM [Concomitant]
     Active Substance: CITALOPRAM HYDROBROMIDE
     Indication: DEPRESSION
     Route: 065

REACTIONS (5)
  - Lymphadenitis [Not Recovered/Not Resolved]
  - Overdose [Unknown]
  - Incorrect route of drug administration [Unknown]
  - Lymphadenopathy [Not Recovered/Not Resolved]
  - Osteoarthritis [Not Recovered/Not Resolved]

NARRATIVE: CASE EVENT DATE: 201610
